FAERS Safety Report 18615154 (Version 3)
Quarter: 2021Q1

REPORT INFORMATION
  Report Type: Report from Study
  Country: None (occurrence: US)
  Receive Date: 20201215
  Receipt Date: 20210105
  Transmission Date: 20210419
  Serious: Yes (Hospitalization, Other)
  Sender: FDA-Public Use
  Company Number: US-ABBVIE-20K-163-3686710-00

PATIENT
  Age: 64 Year
  Sex: Male

DRUGS (1)
  1. RINVOQ [Suspect]
     Active Substance: UPADACITINIB
     Indication: RHEUMATOID ARTHRITIS
     Route: 048
     Dates: start: 2018

REACTIONS (14)
  - Rotator cuff syndrome [Unknown]
  - Musculoskeletal stiffness [Unknown]
  - Intervertebral disc protrusion [Unknown]
  - Gait inability [Unknown]
  - Laboratory test abnormal [Unknown]
  - Body temperature decreased [Unknown]
  - Cardiac fibrillation [Recovered/Resolved]
  - Osteoarthritis [Unknown]
  - Tendonitis [Unknown]
  - Asthenia [Recovering/Resolving]
  - Restlessness [Recovered/Resolved]
  - COVID-19 [Unknown]
  - Feeding disorder [Recovered/Resolved]
  - Drug ineffective [Unknown]

NARRATIVE: CASE EVENT DATE: 2020
